FAERS Safety Report 21543214 (Version 2)
Quarter: 2023Q1

REPORT INFORMATION
  Report Type: Spontaneous
  Country: US (occurrence: US)
  Receive Date: 20221102
  Receipt Date: 20230209
  Transmission Date: 20230418
  Serious: No
  Sender: FDA-Public Use
  Company Number: US-SA-SAC20221031001450

PATIENT
  Age: 49 Year
  Sex: Female

DRUGS (2)
  1. DUPIXENT [Suspect]
     Active Substance: DUPILUMAB
     Indication: Dermatitis atopic
     Dosage: 300 MG, FREQUENCY: OTHER
     Route: 058
     Dates: start: 202207
  2. RITUXAN [Concomitant]
     Active Substance: RITUXIMAB

REACTIONS (4)
  - Fatigue [Unknown]
  - Injection site pain [Unknown]
  - Injection site pain [Unknown]
  - Product preparation error [Unknown]
